FAERS Safety Report 9270040 (Version 1)
Quarter: 2013Q2

REPORT INFORMATION
  Report Type: Spontaneous
  Country: CA (occurrence: CA)
  Receive Date: 20130503
  Receipt Date: 20130503
  Transmission Date: 20140414
  Serious: Yes (Other)
  Sender: FDA-Public Use
  Company Number: CA-ELI_LILLY_AND_COMPANY-CA201304007322

PATIENT
  Age: 78 Year
  Sex: Female

DRUGS (6)
  1. FORTEO [Suspect]
     Indication: OSTEOPOROSIS
     Dosage: 20 UG, QD
     Route: 058
     Dates: start: 20120924
  2. CITRACAL [Concomitant]
  3. COUMADIN [Concomitant]
  4. ATORVASTATIN [Concomitant]
  5. DILTIAZEM [Concomitant]
  6. TYLENOL                                 /SCH/ [Concomitant]
     Indication: ARTHRITIS
     Dosage: UNK, PRN

REACTIONS (2)
  - Pulmonary embolism [Unknown]
  - Atrial fibrillation [Unknown]
